FAERS Safety Report 9223383 (Version 1)
Quarter: 2013Q2

REPORT INFORMATION
  Report Type: Spontaneous
  Country: DE (occurrence: DE)
  Receive Date: 20130410
  Receipt Date: 20130410
  Transmission Date: 20140414
  Serious: Yes (Congenital Anomaly, Other)
  Sender: FDA-Public Use
  Company Number: DE-ABBOTT-13A-062-1073860-00

PATIENT
  Sex: Male

DRUGS (4)
  1. VALPROIC ACID [Suspect]
     Indication: MATERNAL EXPOSURE TIMING UNSPECIFIED
     Route: 064
  2. VALPROIC ACID [Suspect]
     Route: 063
  3. LAMOTRIGINE [Suspect]
     Indication: MATERNAL EXPOSURE TIMING UNSPECIFIED
     Route: 064
  4. LAMOTRIGINE [Suspect]
     Route: 063

REACTIONS (5)
  - Transient tachypnoea of the newborn [Recovered/Resolved]
  - Conjunctivitis bacterial [Unknown]
  - Aplasia cutis congenita [Not Recovered/Not Resolved]
  - Foetal exposure during pregnancy [Unknown]
  - Exposure during breast feeding [Unknown]
